FAERS Safety Report 4589812-1 (Version None)
Quarter: 2005Q1

REPORT INFORMATION
  Report Type: 
  Country: None (occurrence: None)
  Receive Date: 20050223
  Receipt Date: 20050216
  Transmission Date: 20050727
  Serious: Yes (Hospitalization)
  Sender: FDA-Public Use
  Company Number: PT-GLAXOSMITHKLINE-B0372557A

PATIENT
  Age: 51 Year
  Sex: Male
  Weight: 71 kg

DRUGS (4)
  1. AMOXICILLIN AND CLAVULANATE POTASSIUM [Suspect]
     Dosage: 2U PER DAY
     Route: 048
     Dates: start: 20041115, end: 20041127
  2. METOPROLOL TARTRATE [Concomitant]
     Indication: HYPERTENSION
     Dosage: 100MG PER DAY
     Route: 048
     Dates: start: 20000101
  3. CLOBAZAM [Concomitant]
     Indication: ANXIETY
     Route: 048
     Dates: start: 20000101
  4. NIMESULIDE [Concomitant]
     Dosage: 200MG PER DAY
     Route: 048
     Dates: start: 20041115, end: 20041117

REACTIONS (9)
  - ALANINE AMINOTRANSFERASE INCREASED [None]
  - ASPARTATE AMINOTRANSFERASE INCREASED [None]
  - BILIRUBIN CONJUGATED INCREASED [None]
  - BLOOD ALKALINE PHOSPHATASE INCREASED [None]
  - BLOOD BILIRUBIN INCREASED [None]
  - GAMMA-GLUTAMYLTRANSFERASE INCREASED [None]
  - HEPATITIS CHOLESTATIC [None]
  - JAUNDICE [None]
  - PRURITUS [None]
